FAERS Safety Report 8179959-5 (Version None)
Quarter: 2012Q1

REPORT INFORMATION
  Report Type: 
  Country: None (occurrence: None)
  Receive Date: 20120302
  Receipt Date: 20120220
  Transmission Date: 20120608
  Serious: Yes (Life-Threatening, Hospitalization)
  Sender: FDA-Public Use
  Company Number: FR-BRISTOL-MYERS SQUIBB COMPANY-16412686

PATIENT
  Age: 72 Year
  Sex: Female

DRUGS (3)
  1. GEMZAR [Suspect]
     Indication: OVARIAN CANCER
     Dosage: 200MG*3
     Route: 042
  2. TAXOL [Suspect]
     Indication: OVARIAN CANCER
     Dosage: 60MG*3
     Route: 042
     Dates: start: 20041004, end: 20041006
  3. CARBOPLATIN [Suspect]
     Indication: OVARIAN CANCER
     Dosage: 100MG*3
     Route: 042

REACTIONS (7)
  - DEHYDRATION [None]
  - ASTHENIA [None]
  - DECREASED APPETITE [None]
  - COUGH [None]
  - TACHYPNOEA [None]
  - FEBRILE NEUTROPENIA [None]
  - CARDIAC FAILURE [None]
